FAERS Safety Report 6161167-0 (Version None)
Quarter: 2009Q2

REPORT INFORMATION
  Report Type: 
  Country: None (occurrence: None)
  Receive Date: 20090417
  Receipt Date: 20090417
  Transmission Date: 20091009
  Serious: Yes (Hospitalization)
  Sender: FDA-Public Use
  Company Number: None

PATIENT
  Age: 67 Year
  Sex: Female
  Weight: 58.9676 kg

DRUGS (1)
  1. DEMECLOCYCLINE HCL [Suspect]
     Dosage: 4 TABLETS 4X/DAY MOUTH
     Route: 048
     Dates: start: 20090101

REACTIONS (1)
  - MUSCULAR WEAKNESS [None]
